FAERS Safety Report 21236846 (Version 2)
Quarter: 2023Q1

REPORT INFORMATION
  Report Type: Spontaneous
  Country: US (occurrence: US)
  Receive Date: 20220822
  Receipt Date: 20230209
  Transmission Date: 20230417
  Serious: Yes (Life-Threatening, Hospitalization)
  Sender: FDA-Public Use
  Company Number: US-SAMSUNG BIOEPIS-SB-2022-20384

PATIENT
  Age: 2 Year

DRUGS (1)
  1. RENFLEXIS [Suspect]
     Active Substance: INFLIXIMAB-ABDA
     Indication: Product used for unknown indication
     Route: 065

REACTIONS (6)
  - Vomiting [Unknown]
  - Pyrexia [Unknown]
  - Erythema [Unknown]
  - Agitation [Unknown]
  - Product use issue [Unknown]
  - Product use in unapproved indication [Unknown]
